FAERS Safety Report 15061419 (Version 1)
Quarter: 2018Q2

REPORT INFORMATION
  Report Type: Spontaneous
  Country: US (occurrence: US)
  Receive Date: 20180625
  Receipt Date: 20180625
  Transmission Date: 20180711
  Serious: Yes (Other)
  Sender: FDA-Public Use
  Company Number: US-ROCHE-2111309

PATIENT
  Age: 71 Year
  Sex: Female
  Weight: 76.27 kg

DRUGS (13)
  1. XELODA [Suspect]
     Active Substance: CAPECITABINE
     Dosage: ONGOING: NO
     Route: 065
     Dates: start: 20180209, end: 20180402
  2. LIPITOR [Concomitant]
     Active Substance: ATORVASTATIN CALCIUM
     Dosage: EVERY OTHER DAY ;ONGOING: YES
     Route: 065
  3. POTASSIUM CHLORIDE. [Concomitant]
     Active Substance: POTASSIUM CHLORIDE
     Route: 065
  4. COENZYME Q10 [Concomitant]
     Active Substance: UBIDECARENONE
  5. XELODA [Suspect]
     Active Substance: CAPECITABINE
     Dosage: ONGOING: YES
     Route: 065
     Dates: start: 20180403
  6. B6 [Concomitant]
     Active Substance: PYRIDOXINE HYDROCHLORIDE
     Dosage: YES
     Route: 065
  7. NORVASC [Concomitant]
     Active Substance: AMLODIPINE BESYLATE
     Indication: HYPERTENSION
     Dosage: ONGOING:YES
     Route: 065
  8. PROTONIX [Concomitant]
     Active Substance: PANTOPRAZOLE SODIUM
     Dosage: EVERY OTHER DAY ;ONGOING: YES
     Route: 065
  9. VITAMIN D3 [Concomitant]
     Active Substance: CHOLECALCIFEROL
     Dosage: YES
     Route: 065
  10. CALCIUM D3 [Concomitant]
     Active Substance: CALCIUM\CHOLECALCIFEROL
     Dosage: YES
     Route: 065
  11. CLARITAN (UNK INGREDIENTS) [Concomitant]
     Dosage: AS NEEDED ;ONGOING: YES
     Route: 065
  12. XELODA [Suspect]
     Active Substance: CAPECITABINE
     Indication: COLON CANCER STAGE II
     Dosage: ONGOING: NO
     Route: 065
     Dates: start: 20180205, end: 20180208
  13. FLONASE [Concomitant]
     Active Substance: FLUTICASONE PROPIONATE
     Dosage: AS NEEDED; ONGOING: YES
     Route: 065

REACTIONS (4)
  - Neuropathy peripheral [Unknown]
  - Thrombophlebitis [Recovering/Resolving]
  - Limb mass [Not Recovered/Not Resolved]
  - Diarrhoea [Recovered/Resolved]

NARRATIVE: CASE EVENT DATE: 20180415
